FAERS Safety Report 9657229 (Version 1)
Quarter: 2013Q4

REPORT INFORMATION
  Report Type: Spontaneous
  Country: US (occurrence: US)
  Receive Date: 20131030
  Receipt Date: 20131030
  Transmission Date: 20140711
  Serious: Yes (Hospitalization, Other)
  Sender: FDA-Public Use
  Company Number: US-ELI_LILLY_AND_COMPANY-US201310006025

PATIENT
  Age: 71 Year
  Sex: Male

DRUGS (2)
  1. ALIMTA [Suspect]
     Indication: LUNG ADENOCARCINOMA
     Dosage: 500 MG/M2, UNKNOWN
     Route: 065
     Dates: start: 2013, end: 201308
  2. CISPLATIN [Suspect]
     Indication: LUNG ADENOCARCINOMA
     Route: 065

REACTIONS (4)
  - Myocardial infarction [Unknown]
  - Intestinal perforation [Unknown]
  - Thrombocytopenia [Unknown]
  - Pleural effusion [Unknown]
